FAERS Safety Report 5878862-0 (Version None)
Quarter: 2008Q3

REPORT INFORMATION
  Report Type: 
  Country: None (occurrence: None)
  Receive Date: 20080910
  Receipt Date: 20080827
  Transmission Date: 20090109
  Serious: Yes (Hospitalization)
  Sender: FDA-Public Use
  Company Number: TRP_05829_2008

PATIENT
  Sex: Male
  Weight: 131.5431 kg

DRUGS (9)
  1. INFERGEN [Suspect]
     Indication: HEPATITIS C
     Dosage: 15 UG, QD, SUBCUTANEOUS
     Route: 058
     Dates: start: 20080129
  2. COPEGUS [Suspect]
     Indication: HEPATITIS C
     Dosage: 600 MG,BID, ORAL
     Route: 048
     Dates: start: 20080129
  3. ATENOLOL [Concomitant]
  4. NORVASC [Concomitant]
  5. WELLBUTRIN SR [Concomitant]
  6. LEVOXYL [Concomitant]
  7. ALTACE [Concomitant]
  8. ASPIRIN [Concomitant]
  9. XANAX [Concomitant]

REACTIONS (39)
  - ALANINE AMINOTRANSFERASE INCREASED [None]
  - ASPARTATE AMINOTRANSFERASE INCREASED [None]
  - ATAXIA [None]
  - BLOOD CALCIUM DECREASED [None]
  - BLOOD CHLORIDE INCREASED [None]
  - BLOOD GLUCOSE INCREASED [None]
  - BLOOD MAGNESIUM DECREASED [None]
  - BLOOD THYROID STIMULATING HORMONE DECREASED [None]
  - BREATH SOUNDS ABNORMAL [None]
  - CAROTID ARTERY STENOSIS [None]
  - CORONARY ARTERY DISEASE [None]
  - DEHYDRATION [None]
  - DILATATION VENTRICULAR [None]
  - DIZZINESS [None]
  - EOSINOPHIL PERCENTAGE INCREASED [None]
  - FOLLICULITIS [None]
  - GAIT DISTURBANCE [None]
  - LEFT VENTRICULAR HYPERTROPHY [None]
  - LYMPHOCYTE PERCENTAGE DECREASED [None]
  - MEAN PLATELET VOLUME INCREASED [None]
  - MONOCYTE PERCENTAGE INCREASED [None]
  - MUSCULAR WEAKNESS [None]
  - MYOCARDIAL ISCHAEMIA [None]
  - NEUTROPHIL PERCENTAGE INCREASED [None]
  - OEDEMA PERIPHERAL [None]
  - PLATELET COUNT DECREASED [None]
  - PROTEIN URINE PRESENT [None]
  - PSORIASIS [None]
  - RED CELL DISTRIBUTION WIDTH INCREASED [None]
  - RIGHT ATRIAL DILATATION [None]
  - SICK SINUS SYNDROME [None]
  - SINUS BRADYCARDIA [None]
  - SUPRAVENTRICULAR EXTRASYSTOLES [None]
  - TRICUSPID VALVE INCOMPETENCE [None]
  - URINE KETONE BODY PRESENT [None]
  - VASCULAR CALCIFICATION [None]
  - VENTRICULAR EXTRASYSTOLES [None]
  - VENTRICULAR TACHYCARDIA [None]
  - VISION BLURRED [None]
